FAERS Safety Report 6942903-X (Version None)
Quarter: 2010Q3

REPORT INFORMATION
  Report Type: 
  Country: None (occurrence: None)
  Receive Date: 20100826
  Receipt Date: 20100824
  Transmission Date: 20110219
  Serious: Yes (Death)
  Sender: FDA-Public Use
  Company Number: CO-ROCHE-722939

PATIENT
  Sex: Male

DRUGS (1)
  1. HERCEPTIN [Suspect]
     Indication: GASTRIC CANCER
     Dosage: FREQUENCY: Q21 DAYS.
     Route: 042
     Dates: start: 20100628, end: 20100719

REACTIONS (1)
  - MALIGNANT NEOPLASM PROGRESSION [None]
